FAERS Safety Report 20203176 (Version 11)
Quarter: 2022Q4

REPORT INFORMATION
  Report Type: Report from Study
  Country: BR (occurrence: BR)
  Receive Date: 20211218
  Receipt Date: 20221206
  Transmission Date: 20230113
  Serious: Yes (Hospitalization, Other)
  Sender: FDA-Public Use
  Company Number: BR-NOVARTISPH-NVSC2021BR204573

PATIENT
  Age: 64 Year
  Sex: Female

DRUGS (9)
  1. PIQRAY [Suspect]
     Active Substance: ALPELISIB
     Indication: Breast cancer
     Dosage: 250 MG (200 MG AND 50 MG)
     Route: 065
     Dates: start: 20210823
  2. PIQRAY [Suspect]
     Active Substance: ALPELISIB
     Dosage: 400 MG
     Route: 065
     Dates: start: 20210824
  3. PIQRAY [Suspect]
     Active Substance: ALPELISIB
     Dosage: 300 MG
     Route: 065
     Dates: start: 20210824
  4. PIQRAY [Suspect]
     Active Substance: ALPELISIB
     Dosage: 250 MG
     Route: 065
  5. PIQRAY [Suspect]
     Active Substance: ALPELISIB
     Dosage: UNK
     Route: 065
     Dates: start: 20210824
  6. PIQRAY [Suspect]
     Active Substance: ALPELISIB
     Dosage: UNK (DURING THE DAY BEFORE BED)
     Route: 065
     Dates: start: 20210821
  7. PIQRAY [Suspect]
     Active Substance: ALPELISIB
     Dosage: 250 MG (EVERY NIGHT)
     Route: 065
     Dates: start: 20210824
  8. PIQRAY [Suspect]
     Active Substance: ALPELISIB
     Dosage: UNK
     Route: 065
  9. FASLODEX [Concomitant]
     Active Substance: FULVESTRANT
     Indication: Product used for unknown indication
     Dosage: UNK (EVERY 28 DAYS)
     Route: 065

REACTIONS (34)
  - Haemorrhage [Unknown]
  - Diabetes mellitus [Not Recovered/Not Resolved]
  - Type 2 diabetes mellitus [Not Recovered/Not Resolved]
  - Neoplasm malignant [Unknown]
  - Blood glucose increased [Not Recovered/Not Resolved]
  - Melaena [Not Recovered/Not Resolved]
  - Urticaria [Recovered/Resolved]
  - Hypersensitivity [Not Recovered/Not Resolved]
  - Dermatitis allergic [Unknown]
  - Pruritus [Not Recovered/Not Resolved]
  - Pruritus [Recovered/Resolved]
  - Pruritus [Recovered/Resolved]
  - Pruritus [Recovered/Resolved]
  - Pruritus [Recovered/Resolved]
  - Pruritus [Recovered/Resolved]
  - Swelling face [Recovered/Resolved]
  - Alopecia [Not Recovered/Not Resolved]
  - Urticaria [Unknown]
  - Wound [Recovered/Resolved]
  - Wound [Recovered/Resolved]
  - Wound [Unknown]
  - Wound [Recovered/Resolved]
  - Creatinine urine increased [Unknown]
  - Anaemia [Unknown]
  - Faeces discoloured [Recovered/Resolved]
  - Hypersensitivity [Recovered/Resolved]
  - Influenza [Unknown]
  - Faeces discoloured [Recovered/Resolved]
  - Asthenia [Recovered/Resolved]
  - Somnolence [Not Recovered/Not Resolved]
  - Decreased immune responsiveness [Unknown]
  - Asthenia [Recovered/Resolved]
  - Dizziness [Unknown]
  - Product use issue [Unknown]

NARRATIVE: CASE EVENT DATE: 20210801
